FAERS Safety Report 9337444 (Version 1)
Quarter: 2013Q2

REPORT INFORMATION
  Report Type: Other
  Country: GB (occurrence: GB)
  Receive Date: 20130607
  Receipt Date: 20130607
  Transmission Date: 20140414
  Serious: Yes (Death)
  Sender: FDA-Public Use
  Company Number: GB-WATSON-2013-10113

PATIENT
  Age: 23 Year
  Sex: Female

DRUGS (2)
  1. FLUOXETINE HYDROCHLORIDE (UNKNOWN) [Suspect]
     Indication: PRODUCT USED FOR UNKNOWN INDICATION
     Dosage: 1 DF, UNKNOWN
     Route: 065
  2. DINITROPHENOL [Suspect]
     Indication: PRODUCT USED FOR UNKNOWN INDICATION
     Dosage: UNK, UNKNOWN
     Route: 065

REACTIONS (2)
  - Toxicity to various agents [Fatal]
  - Drug interaction [Fatal]
